FAERS Safety Report 11857153 (Version 3)
Quarter: 2016Q3

REPORT INFORMATION
  Report Type: Spontaneous
  Country: US (occurrence: US)
  Receive Date: 20151221
  Receipt Date: 20160928
  Transmission Date: 20161109
  Serious: No
  Sender: FDA-Public Use
  Company Number: US-PFIZER INC-2015410248

PATIENT
  Sex: Male

DRUGS (6)
  1. COLCHICINE. [Suspect]
     Active Substance: COLCHICINE
     Dosage: UNK
  2. QUINIDINE [Suspect]
     Active Substance: QUINIDINE
     Dosage: UNK
  3. LIPITOR [Suspect]
     Active Substance: ATORVASTATIN CALCIUM
     Dosage: UNK
  4. BACTRIM [Suspect]
     Active Substance: SULFAMETHOXAZOLE\TRIMETHOPRIM
     Dosage: UNK
  5. NIASPAN [Suspect]
     Active Substance: NIACIN
     Dosage: UNK
  6. ATORVASTATIN CALCIUM. [Suspect]
     Active Substance: ATORVASTATIN CALCIUM
     Dosage: UNK

REACTIONS (2)
  - Drug hypersensitivity [Unknown]
  - Influenza like illness [Unknown]
